FAERS Safety Report 5743406-0 (Version None)
Quarter: 2008Q2

REPORT INFORMATION
  Report Type: 
  Country: None (occurrence: None)
  Receive Date: 20080516
  Receipt Date: 20080516
  Transmission Date: 20081010
  Serious: No
  Sender: FDA-Public Use
  Company Number: None

PATIENT
  Sex: Female
  Weight: 48.0813 kg

DRUGS (1)
  1. CIPROFLOXACIN [Suspect]
     Indication: PULMONARY CONGESTION
     Dates: start: 20080304, end: 20080311

REACTIONS (1)
  - VISION BLURRED [None]
